FAERS Safety Report 12818014 (Version 2)
Quarter: 2016Q4

REPORT INFORMATION
  Report Type: Spontaneous
  Country: US (occurrence: US)
  Receive Date: 20161005
  Receipt Date: 20161020
  Transmission Date: 20170207
  Serious: Yes (Other)
  Sender: FDA-Public Use
  Company Number: US-LUNDBECK-DKLU2020338

PATIENT
  Sex: Female
  Weight: 59 kg

DRUGS (2)
  1. NORTHERA [Suspect]
     Active Substance: DROXIDOPA
     Indication: PRODUCT USED FOR UNKNOWN INDICATION
     Dosage: TITRATION SCHEDULE C
     Route: 065
  2. NORTHERA [Suspect]
     Active Substance: DROXIDOPA
     Route: 065

REACTIONS (19)
  - Altered state of consciousness [Recovered/Resolved]
  - Paraesthesia [Not Recovered/Not Resolved]
  - Palpitations [Unknown]
  - Dizziness [Unknown]
  - Tinnitus [Not Recovered/Not Resolved]
  - Musculoskeletal stiffness [Unknown]
  - Sleep disorder [Not Recovered/Not Resolved]
  - Syncope [Unknown]
  - Dyspnoea [Unknown]
  - Tremor [Unknown]
  - Headache [Unknown]
  - Oedema peripheral [Unknown]
  - Fatigue [Unknown]
  - Pain [Unknown]
  - Vomiting [Not Recovered/Not Resolved]
  - Asthenia [Not Recovered/Not Resolved]
  - Incontinence [Unknown]
  - Blood pressure decreased [Unknown]
  - Nausea [Unknown]
